FAERS Safety Report 5149568-0 (Version None)
Quarter: 2006Q4

REPORT INFORMATION
  Report Type: 
  Country: None (occurrence: None)
  Receive Date: 20061113
  Receipt Date: 20060511
  Transmission Date: 20070319
  Serious: No
  Sender: FDA-Public Use
  Company Number: US-GLAXOSMITHKLINE-A0605215A

PATIENT
  Age: 57 Year
  Sex: Female

DRUGS (10)
  1. COREG [Suspect]
     Dosage: 12.5MG UNKNOWN
     Route: 048
     Dates: start: 20051124
  2. ACEON [Concomitant]
  3. LASIX [Concomitant]
  4. PAXIL [Concomitant]
  5. POTASSIUM CHLORIDE [Concomitant]
  6. DIGOXIN [Concomitant]
  7. PEPCID AC [Concomitant]
  8. GLUCOSAMINE [Concomitant]
  9. VITAMIN E [Concomitant]
  10. IBUPROFEN [Concomitant]

REACTIONS (3)
  - MOUTH ULCERATION [None]
  - OEDEMA MOUTH [None]
  - PHARMACEUTICAL PRODUCT COMPLAINT [None]
